FAERS Safety Report 7837585-9 (Version None)
Quarter: 2011Q4

REPORT INFORMATION
  Report Type: 
  Country: None (occurrence: None)
  Receive Date: 20111024
  Receipt Date: 20110221
  Transmission Date: 20120403
  Serious: No
  Sender: FDA-Public Use
  Company Number: US-ABBOTT-11P-163-0704788-00

PATIENT
  Sex: Female
  Weight: 71.732 kg

DRUGS (5)
  1. LUPRON DEPOT [Suspect]
     Indication: PRODUCT USED FOR UNKNOWN INDICATION
     Dates: start: 20101101
  2. ADVAIR DISKUS 100/50 [Concomitant]
     Indication: ASTHMA
  3. LEXAPRO [Concomitant]
     Indication: DEPRESSION
  4. LEXAPRO [Concomitant]
     Indication: ANXIETY
     Dates: start: 20100801
  5. SINGULAIR [Concomitant]
     Indication: ASTHMA

REACTIONS (8)
  - CONTUSION [None]
  - FATIGUE [None]
  - PHOTOSENSITIVITY REACTION [None]
  - NAUSEA [None]
  - LOSS OF LIBIDO [None]
  - ERYTHEMA [None]
  - SKIN DISCOLOURATION [None]
  - VOMITING [None]
